FAERS Safety Report 23096293 (Version 3)
Quarter: 2024Q4

REPORT INFORMATION
  Report Type: Report from Study
  Country: CA (occurrence: CA)
  Receive Date: 20231023
  Receipt Date: 20241121
  Transmission Date: 20250114
  Serious: Yes (Other)
  Sender: TAKEDA
  Company Number: CA-TAKEDA-2023TUS101420

PATIENT
  Sex: Male

DRUGS (20)
  1. HUMAN IMMUNOGLOBULIN G [Suspect]
     Active Substance: HUMAN IMMUNOGLOBULIN G
     Indication: Secondary immunodeficiency
     Dosage: 6 GRAM, 1/WEEK
     Dates: start: 20231010
  2. HUMAN IMMUNOGLOBULIN G [Suspect]
     Active Substance: HUMAN IMMUNOGLOBULIN G
     Dosage: 6 GRAM, 1/WEEK
  3. HUMAN IMMUNOGLOBULIN G [Suspect]
     Active Substance: HUMAN IMMUNOGLOBULIN G
     Dosage: 6 GRAM, 1/WEEK
  4. HUMAN IMMUNOGLOBULIN G [Suspect]
     Active Substance: HUMAN IMMUNOGLOBULIN G
     Dosage: 10 GRAM, 1/WEEK
  5. LUMIGAN [Concomitant]
     Active Substance: BIMATOPROST
     Dosage: 1 DOSAGE FORM, QD
  6. PANTOPRAZOLE [Concomitant]
     Active Substance: PANTOPRAZOLE
     Dosage: 40 MILLIGRAM, QD
  7. PRAVASTATIN [Concomitant]
     Active Substance: PRAVASTATIN
     Dosage: 40 MILLIGRAM, QD
  8. LEVOFLOXACIN [Concomitant]
     Active Substance: LEVOFLOXACIN
     Dosage: 500 MILLIGRAM, QD
  9. LAMIVUDINE [Concomitant]
     Active Substance: LAMIVUDINE
     Dosage: 100 MILLIGRAM, QD
  10. SULFATRIM [Concomitant]
     Active Substance: SULFAMETHOXAZOLE\TRIMETHOPRIM
     Dosage: UNK
  11. SENNOSIDES [Concomitant]
     Active Substance: SENNOSIDES
     Dosage: 8.6 MILLIGRAM
  12. HYDROMORPHONE [Concomitant]
     Active Substance: HYDROMORPHONE
     Dosage: 3 MILLIGRAM, BID
  13. ONDANSETRON [Concomitant]
     Active Substance: ONDANSETRON
     Dosage: 4 MILLIGRAM, Q12H
  14. VALACYCLOVIR [Concomitant]
     Active Substance: VALACYCLOVIR HYDROCHLORIDE
     Dosage: 500 MILLIGRAM, QD
  15. CALCIUM CARBONATE [Concomitant]
     Active Substance: CALCIUM CARBONATE
     Dosage: 500 MILLIGRAM, BID
  16. VITAMIN D [Concomitant]
     Active Substance: VITAMIN D NOS
     Dosage: 1000 MICROGRAM, QD
  17. TAMSULOSIN [Concomitant]
     Active Substance: TAMSULOSIN
     Dosage: 0.4 MILLIGRAM, QD
  18. VALGANCICLOVIR [Concomitant]
     Active Substance: VALGANCICLOVIR
     Dosage: 450 MILLIGRAM, BID
  19. ELRANATAMAB [Concomitant]
     Active Substance: ELRANATAMAB
     Dosage: UNK UNK, 1/WEEK
  20. DARATUMUMAB [Concomitant]
     Active Substance: DARATUMUMAB
     Dosage: UNK UNK, 1/WEEK

REACTIONS (5)
  - Angina pectoris [Recovering/Resolving]
  - Poor venous access [Unknown]
  - Incorrect drug administration rate [Unknown]
  - Infusion site swelling [Recovering/Resolving]
  - Nausea [Recovering/Resolving]
